FAERS Safety Report 9472527 (Version 3)
Quarter: 2013Q4

REPORT INFORMATION
  Report Type: Spontaneous
  Country: AU (occurrence: AU)
  Receive Date: 20130823
  Receipt Date: 20131031
  Transmission Date: 20140711
  Serious: Yes (Disabling)
  Sender: FDA-Public Use
  Company Number: AU-PFIZER INC-2013167635

PATIENT
  Age: 59 Year
  Sex: Male

DRUGS (4)
  1. CHAMPIX [Suspect]
     Indication: SMOKING CESSATION THERAPY
     Dosage: UNK
     Route: 048
     Dates: start: 20101103, end: 20101111
  2. EPILIM [Concomitant]
     Indication: TEMPORAL LOBE EPILEPSY
  3. ZYPREXA [Concomitant]
     Dosage: 10 MG AT NIGHT
  4. THYROXINE [Concomitant]
     Dosage: 50 UG, 1X/DAY

REACTIONS (2)
  - Epilepsy [Recovered/Resolved]
  - Temporal lobe epilepsy [Recovered/Resolved]
